FAERS Safety Report 13278725 (Version 3)
Quarter: 2017Q2

REPORT INFORMATION
  Report Type: Report from Study
  Country: IT (occurrence: IT)
  Receive Date: 20170228
  Receipt Date: 20170605
  Transmission Date: 20170830
  Serious: Yes (Hospitalization, Other)
  Sender: FDA-Public Use
  Company Number: IT-TEVA-743703ACC

PATIENT
  Age: 81 Year
  Sex: Male
  Weight: 70 kg

DRUGS (14)
  1. FOLIC ACID. [Concomitant]
     Active Substance: FOLIC ACID
     Indication: PROPHYLAXIS
     Dosage: 5 MILLIGRAM DAILY;
     Route: 048
  2. CARVEDILOLO [Concomitant]
     Active Substance: CARVEDILOL
     Indication: HYPERTENSION
     Dosage: 25 MILLIGRAM DAILY;
     Route: 048
     Dates: start: 20170209
  3. CLOPIDOGREL [Concomitant]
     Active Substance: CLOPIDOGREL BISULFATE
     Indication: ANTICOAGULANT THERAPY
  4. RANEXA [Concomitant]
     Active Substance: RANOLAZINE
     Indication: ANGINA PECTORIS
     Dosage: 375 MILLIGRAM DAILY;
     Route: 048
  5. WARFARIN [Suspect]
     Active Substance: WARFARIN
     Indication: CARDIOVASCULAR DISORDER
     Dosage: 5 MILLIGRAM DAILY;
     Route: 048
     Dates: start: 20170308, end: 2017
  6. ENALAPRIL [Concomitant]
     Active Substance: ENALAPRIL
     Indication: HYPERTENSION
     Dosage: 5 MILLIGRAM DAILY;
     Route: 048
     Dates: start: 20170308
  7. ASA [Concomitant]
     Active Substance: ASPIRIN
     Indication: CARDIOVASCULAR DISORDER
     Dosage: 100 MILLIGRAM DAILY;
     Route: 048
  8. TAMSULOSINA [Concomitant]
     Active Substance: TAMSULOSIN HYDROCHLORIDE
     Indication: BENIGN PROSTATIC HYPERPLASIA
     Dosage: .4 MILLIGRAM DAILY;
     Route: 065
  9. WARFARIN [Suspect]
     Active Substance: WARFARIN
     Indication: ATRIAL FIBRILLATION
     Dosage: 11 MILLIGRAM DAILY; 1,3 AND 5 MG
     Route: 048
     Dates: start: 20160513, end: 20170209
  10. LANSOPRAZOLO [Concomitant]
     Active Substance: LANSOPRAZOLE
     Indication: GASTRITIS PROPHYLAXIS
     Dosage: 30 MILLIGRAM DAILY;
     Route: 048
  11. SPIRONOLACTONE. [Concomitant]
     Active Substance: SPIRONOLACTONE
     Indication: HYPERTENSION
     Dosage: 25 MILLIGRAM DAILY;
     Route: 048
     Dates: start: 20170209
  12. CLOPIDOGREL [Concomitant]
     Active Substance: CLOPIDOGREL BISULFATE
     Indication: CARDIOVASCULAR DISORDER
     Dosage: 75 MILLIGRAM DAILY;
     Route: 048
     Dates: start: 20160513
  13. LORMETAZEPAM [Concomitant]
     Active Substance: LORMETAZEPAM
     Indication: RESTLESSNESS
     Dosage: 2.5 DROPS
     Route: 048
  14. AMIODARONE [Concomitant]
     Active Substance: AMIODARONE
     Indication: ARRHYTHMIA
     Dosage: 200 MILLIGRAM DAILY;
     Route: 048

REACTIONS (5)
  - Mitral valve incompetence [Recovered/Resolved]
  - Chronic kidney disease [Unknown]
  - Gastrointestinal tract adenoma [Unknown]
  - Anaemia [Recovered/Resolved]
  - Cardiac failure [Recovered/Resolved]

NARRATIVE: CASE EVENT DATE: 20160704
